FAERS Safety Report 8540512-2 (Version None)
Quarter: 2012Q3

REPORT INFORMATION
  Report Type: 
  Country: None (occurrence: None)
  Receive Date: 20120726
  Receipt Date: 20110729
  Transmission Date: 20120928
  Serious: No
  Sender: FDA-Public Use
  Company Number: US-ASTRAZENECA-2011SE45571

PATIENT
  Age: 47 Year
  Sex: Male
  Weight: 93 kg

DRUGS (4)
  1. DEPAKOATE [Concomitant]
  2. GABAPENTIN [Concomitant]
  3. BACLOFEN [Concomitant]
  4. SEROQUEL XR [Suspect]
     Indication: BIPOLAR DISORDER
     Route: 048
     Dates: start: 20110701, end: 20110701

REACTIONS (2)
  - PANIC ATTACK [None]
  - HYPERSOMNIA [None]
